FAERS Safety Report 5506338-9 (Version None)
Quarter: 2007Q4

REPORT INFORMATION
  Report Type: 
  Country: None (occurrence: None)
  Receive Date: 20071101
  Receipt Date: 20071101
  Transmission Date: 20080405
  Serious: Yes (Hospitalization)
  Sender: FDA-Public Use
  Company Number: None

PATIENT
  Sex: Female
  Weight: 71.4 kg

DRUGS (3)
  1. CARBOPLATIN [Suspect]
     Dosage: 1650 MG
  2. ERBITUX [Suspect]
     Dosage: 1140 MG
  3. ALIMTA [Suspect]
     Dosage: 4480 MG

REACTIONS (3)
  - GASTRITIS [None]
  - HAEMATEMESIS [None]
  - OESOPHAGITIS [None]
